FAERS Safety Report 10336277 (Version 1)
Quarter: 2014Q3

REPORT INFORMATION
  Report Type: Spontaneous
  Country: US (occurrence: US)
  Receive Date: 20140723
  Receipt Date: 20140723
  Transmission Date: 20150326
  Serious: No
  Sender: FDA-Public Use
  Company Number: US-BRISTOL-MYERS SQUIBB COMPANY-19987007

PATIENT
  Sex: Female
  Weight: 68.03 kg

DRUGS (2)
  1. LEVORA [Suspect]
     Active Substance: ETHINYL ESTRADIOL\LEVONORGESTREL
     Indication: CONTRACEPTION
     Dates: start: 2009, end: 201306
  2. COUMADIN [Suspect]
     Active Substance: WARFARIN SODIUM
     Dosage: 1DF:12MG FOR FIRST 2 DAYS OF WEEK,15MG FOR REST OF DAYS. D REDUCED:7+10MG. D INCREASED:15+12MG.

REACTIONS (2)
  - International normalised ratio increased [Unknown]
  - Contusion [Unknown]

NARRATIVE: CASE EVENT DATE: 2009
